FAERS Safety Report 11984020 (Version 2)
Quarter: 2016Q1

REPORT INFORMATION
  Report Type: Spontaneous
  Country: DE (occurrence: DE)
  Receive Date: 20160201
  Receipt Date: 20160217
  Transmission Date: 20160526
  Serious: Yes (Other)
  Sender: FDA-Public Use
  Company Number: DE-TEVA-628954GER

PATIENT
  Sex: Female
  Weight: 78 kg

DRUGS (1)
  1. TAMOXIFEN-ABZ 20 MG TABLETTEN [Suspect]
     Active Substance: TAMOXIFEN
     Indication: BREAST CANCER FEMALE
     Dosage: TEMPORARILY INTERRUPTED FOR 2 WEEKS
     Route: 048
     Dates: start: 20130803

REACTIONS (4)
  - Vein disorder [Recovered/Resolved]
  - Sudden hearing loss [Recovered/Resolved]
  - Pain in extremity [Recovered/Resolved]
  - Muscle spasms [Recovered/Resolved]

NARRATIVE: CASE EVENT DATE: 2015
